FAERS Safety Report 13801573 (Version 1)
Quarter: 2017Q3

REPORT INFORMATION
  Report Type: Spontaneous
  Country: US (occurrence: US)
  Receive Date: 20170727
  Receipt Date: 20170727
  Transmission Date: 20171127
  Serious: Yes (Other)
  Sender: FDA-Public Use
  Company Number: PHHY2017US107905

PATIENT
  Age: 55 Year
  Sex: Male

DRUGS (2)
  1. LISINOPRIL. [Suspect]
     Active Substance: LISINOPRIL
     Indication: LEFT VENTRICULAR DYSFUNCTION
     Dosage: 2.5 MG, UNK
     Route: 048
  2. FUROSEMIDE. [Suspect]
     Active Substance: FUROSEMIDE
     Indication: LEFT VENTRICULAR DYSFUNCTION
     Dosage: 20 MG, UNK
     Route: 048

REACTIONS (10)
  - Hypertrophic cardiomyopathy [Recovered/Resolved]
  - Tachycardia [Recovered/Resolved]
  - Blood pressure decreased [Recovered/Resolved]
  - Stress cardiomyopathy [Unknown]
  - Mitral valve incompetence [Unknown]
  - Jugular vein distension [Unknown]
  - Cardiogenic shock [Unknown]
  - Cardiac murmur [Unknown]
  - Peripheral coldness [Unknown]
  - Urine output decreased [Unknown]
